FAERS Safety Report 5305459-3 (Version None)
Quarter: 2007Q2

REPORT INFORMATION
  Report Type: 
  Country: None (occurrence: None)
  Receive Date: 20070424
  Receipt Date: 20070416
  Transmission Date: 20071010
  Serious: Yes (Other)
  Sender: FDA-Public Use
  Company Number: US-JNJFOC-20070403548

PATIENT
  Age: 66 Year
  Sex: Female
  Weight: 68.04 kg

DRUGS (15)
  1. DURAGESIC-100 [Suspect]
     Route: 062
  2. DURAGESIC-100 [Suspect]
     Indication: PAIN
     Route: 062
  3. DURAGESIC-100 [Suspect]
     Indication: OSTEOARTHRITIS
     Route: 062
  4. VICODIN ES [Concomitant]
     Indication: PAIN
     Route: 048
  5. PREMARIN [Concomitant]
     Route: 048
  6. LEVOTHYROXINE SODIUM [Concomitant]
     Indication: HYPOTHYROIDISM
     Route: 048
  7. VOLTAREN-XR [Concomitant]
     Route: 048
  8. SINGULAIR [Concomitant]
     Indication: ASTHMA
     Route: 048
  9. NEURONTIN [Concomitant]
     Indication: NEUROPATHY
     Route: 048
  10. MIACALCIN [Concomitant]
     Indication: OSTEOPOROSIS
     Route: 055
  11. HYDROCHLOROTHIAZIDE [Concomitant]
     Indication: HYPERTENSION
     Route: 048
  12. ZESTRIL [Concomitant]
     Indication: HYPERTENSION
     Route: 048
  13. IMITREX [Concomitant]
     Indication: MIGRAINE
     Route: 048
  14. PULMICORT [Concomitant]
     Indication: ASTHMA
     Route: 055
  15. ALBUTEROL [Concomitant]
     Indication: ASTHMA
     Route: 055

REACTIONS (1)
  - SUICIDAL IDEATION [None]
